FAERS Safety Report 10956570 (Version 1)
Quarter: 2015Q1

REPORT INFORMATION
  Report Type: Spontaneous
  Country: US (occurrence: None)
  Receive Date: 20150325
  Receipt Date: 20150325
  Transmission Date: 20150721
  Serious: Yes (Other)
  Sender: FDA-Public Use
  Company Number: None

PATIENT
  Age: 74 Year
  Sex: Female
  Weight: 49.9 kg

DRUGS (12)
  1. VIT A [Concomitant]
  2. GARLIC. [Concomitant]
     Active Substance: GARLIC
  3. FISH OIL [Concomitant]
     Active Substance: FISH OIL
  4. VIT B2 [Concomitant]
  5. LIP BALM [Concomitant]
     Active Substance: AVOBENZONE\DIMETHICONE\OCTINOXATE\OXYBENZONE\ZINC OXIDE
  6. VITAMIN C [Concomitant]
     Active Substance: ASCORBIC ACID
  7. VITAMIN E [Concomitant]
     Active Substance: .ALPHA.-TOCOPHEROL
  8. VIBE SUPPLEMENT OF VITES + VEGTABLES [Concomitant]
  9. ZINC [Concomitant]
     Active Substance: ZINC\ZINC CHLORIDE
  10. VITAMIN D3 [Concomitant]
     Active Substance: CHOLECALCIFEROL
  11. METOCLOPRAMIDE. [Suspect]
     Active Substance: METOCLOPRAMIDE
     Indication: PREMEDICATION
     Dosage: 1 TAB. BEFORE MIDNIGHT DAY BEFORE SURGERY + 1 TAB MORN. OF SURGERY
     Route: 048
     Dates: start: 20130110, end: 20130110
  12. CITRICAL [Concomitant]
     Active Substance: CALCIUM CITRATE

REACTIONS (2)
  - Tremor [None]
  - Unevaluable event [None]

NARRATIVE: CASE EVENT DATE: 20130110
